FAERS Safety Report 6504715-0 (Version None)
Quarter: 2009Q4

REPORT INFORMATION
  Report Type: 
  Country: None (occurrence: None)
  Receive Date: 20091216
  Receipt Date: 20091208
  Transmission Date: 20100525
  Serious: Yes (Hospitalization, Other)
  Sender: FDA-Public Use
  Company Number: 2009SP040750

PATIENT
  Age: 45 Year
  Sex: Female

DRUGS (7)
  1. PEG-INTRON [Suspect]
     Indication: HEPATITIS C
     Dosage: QW;SC
     Route: 058
     Dates: start: 20090415, end: 20090422
  2. PEG-INTRON [Suspect]
     Dosage: PO
     Route: 048
  3. CELEBREX [Concomitant]
  4. HYDROMORPHONE [Concomitant]
  5. DILAUDID [Concomitant]
  6. NEURONTIN [Concomitant]
  7. BENEFIX [Concomitant]

REACTIONS (12)
  - CARPAL TUNNEL SYNDROME [None]
  - CHILLS [None]
  - COMPLEX REGIONAL PAIN SYNDROME [None]
  - HAEMATOMA [None]
  - HAEMORRHAGE [None]
  - INSOMNIA [None]
  - MIGRAINE [None]
  - MONOPLEGIA [None]
  - MUSCLE HAEMORRHAGE [None]
  - MYALGIA [None]
  - NERVE COMPRESSION [None]
  - SCIATIC NERVE INJURY [None]
